FAERS Safety Report 9104557 (Version 1)
Quarter: 2013Q1

REPORT INFORMATION
  Report Type: Spontaneous
  Country: US (occurrence: US)
  Receive Date: 20130220
  Receipt Date: 20130220
  Transmission Date: 20140127
  Serious: No
  Sender: FDA-Public Use
  Company Number: US-PFIZER INC-2013062858

PATIENT
  Age: 66 Year
  Sex: Male
  Weight: 79.37 kg

DRUGS (3)
  1. LYRICA [Suspect]
     Indication: NEURALGIA
     Dosage: 75MG IN NIGHT AND 50MG IN MORNING
     Route: 048
     Dates: start: 2011
  2. TYLENOL [Concomitant]
     Indication: PAIN
     Dosage: UNK
  3. CELEBREX [Concomitant]
     Indication: ARTHRITIS
     Dosage: UNK

REACTIONS (1)
  - Visual impairment [Not Recovered/Not Resolved]
